FAERS Safety Report 4686852-9 (Version None)
Quarter: 2005Q2

REPORT INFORMATION
  Report Type: 
  Country: None (occurrence: None)
  Receive Date: 20050608
  Receipt Date: 20050524
  Transmission Date: 20051028
  Serious: Yes (Hospitalization, Disabling)
  Sender: FDA-Public Use
  Company Number: 2005-01083

PATIENT
  Age: 54 Year
  Sex: Male
  Weight: 72 kg

DRUGS (5)
  1. VELCADE [Suspect]
     Indication: MULTIPLE MYELOMA
     Dosage: 2.34 + 1.80 MG, 2/WEEK, INTRAVENOUS
     Route: 042
     Dates: start: 20050222, end: 20050411
  2. VELCADE [Suspect]
     Indication: MULTIPLE MYELOMA
     Dosage: 2.34 + 1.80 MG, 2/WEEK, INTRAVENOUS
     Route: 042
     Dates: start: 20050405, end: 20050411
  3. DOXIL [Suspect]
     Indication: MULTIPLE MYELOMA
     Dosage: 54.00 MG, INTRAVENOUS
     Route: 042
     Dates: start: 20050225, end: 20050408
  4. LITHIUM CARBONATE [Concomitant]
  5. LASIX [Concomitant]

REACTIONS (9)
  - ANTIPSYCHOTIC DRUG LEVEL ABOVE THERAPEUTIC [None]
  - BLOOD ALKALINE PHOSPHATASE INCREASED [None]
  - DRUG INTERACTION [None]
  - DRUG TOXICITY [None]
  - GAMMA-GLUTAMYLTRANSFERASE INCREASED [None]
  - HAEMATOCRIT DECREASED [None]
  - HAEMOGLOBIN DECREASED [None]
  - PLATELET COUNT DECREASED [None]
  - RENAL FAILURE ACUTE [None]
